FAERS Safety Report 8840834 (Version 2)
Quarter: 2012Q4

REPORT INFORMATION
  Report Type: Report from Study
  Country: CA (occurrence: CA)
  Receive Date: 20121015
  Receipt Date: 20121114
  Transmission Date: 20130627
  Serious: Yes (Other)
  Sender: FDA-Public Use
  Company Number: CA-ROCHE-1140827

PATIENT
  Sex: Male

DRUGS (8)
  1. VEMURAFENIB [Suspect]
     Indication: METASTATIC MALIGNANT MELANOMA
     Route: 042
     Dates: start: 20120928
  2. VEMURAFENIB [Suspect]
     Route: 042
     Dates: start: 20120929
  3. VEMURAFENIB [Suspect]
     Route: 042
     Dates: start: 20121001, end: 201210
  4. MICARDIS [Concomitant]
  5. HIDROCHLOROTHIAZIDE [Concomitant]
  6. LEVOTHYROXINE [Concomitant]
  7. ASPIRIN [Concomitant]
     Route: 050
  8. TYLENOL [Concomitant]
     Route: 050

REACTIONS (5)
  - Drug intolerance [Unknown]
  - Pain [Unknown]
  - Abdominal pain upper [Unknown]
  - Dyspnoea [Unknown]
  - Rash [Not Recovered/Not Resolved]
